FAERS Safety Report 4350643-9 (Version None)
Quarter: 2004Q2

REPORT INFORMATION
  Report Type: 
  Country: None (occurrence: None)
  Receive Date: 20040427
  Receipt Date: 20040415
  Transmission Date: 20050107
  Serious: Yes (Other)
  Sender: FDA-Public Use
  Company Number: 2003178520GB

PATIENT
  Age: 22 Year
  Sex: Female

DRUGS (3)
  1. FRAGMIN [Suspect]
     Indication: DEEP VEIN THROMBOSIS
     Dosage: 5000 U, BID, SUBCUTANEOUS; SEE IMAGE
     Route: 058
     Dates: start: 20030814, end: 20030917
  2. FRAGMIN [Suspect]
     Indication: DEEP VEIN THROMBOSIS
     Dosage: 5000 U, BID, SUBCUTANEOUS; SEE IMAGE
     Route: 058
     Dates: start: 20030917, end: 20030917
  3. FLUOXETINE [Concomitant]

REACTIONS (3)
  - HAEMATOMA [None]
  - OVERDOSE [None]
  - PROTHROMBIN TIME RATIO INCREASED [None]
